FAERS Safety Report 7650622-X (Version None)
Quarter: 2011Q3

REPORT INFORMATION
  Report Type: 
  Country: None (occurrence: None)
  Receive Date: 20110802
  Receipt Date: 20110727
  Transmission Date: 20111222
  Serious: Yes (Disabling, Other)
  Sender: FDA-Public Use
  Company Number: US-B.I. PHARMACEUTICALS,INC./RIDGEFIELD-2011-BP-12993PF

PATIENT
  Sex: Male

DRUGS (11)
  1. LIPITOR [Suspect]
     Indication: BLOOD CHOLESTEROL INCREASED
     Dosage: 40 MG
  2. PULMICORT [Suspect]
     Indication: CHRONIC OBSTRUCTIVE PULMONARY DISEASE
  3. SPIRIVA [Suspect]
     Indication: CHRONIC OBSTRUCTIVE PULMONARY DISEASE
     Dosage: 18 MCG
  4. ARFORMOTEROL TARTRATE [Suspect]
     Indication: CHRONIC OBSTRUCTIVE PULMONARY DISEASE
  5. PROZAC [Suspect]
     Dosage: 20 MG
  6. KLONOPIN [Suspect]
     Dosage: 5 MG
  7. TOPROL-XL [Suspect]
     Indication: CARDIAC DISORDER
     Dosage: 25 MG
  8. ZETIA [Suspect]
     Indication: CARDIAC DISORDER
     Dosage: 10 MG
  9. PREDNISONE [Suspect]
     Indication: EMPHYSEMA
  10. ALBUTEROL [Suspect]
     Indication: CHRONIC OBSTRUCTIVE PULMONARY DISEASE
  11. ASPIRIN [Suspect]
     Indication: CARDIAC DISORDER
     Dosage: 81 MG

REACTIONS (6)
  - MUSCULAR WEAKNESS [None]
  - EXERCISE TOLERANCE DECREASED [None]
  - GAIT DISTURBANCE [None]
  - MUSCLE DISORDER [None]
  - PARAESTHESIA [None]
  - DIABETES MELLITUS [None]
